FAERS Safety Report 21513575 (Version 1)
Quarter: 2022Q4

REPORT INFORMATION
  Report Type: Spontaneous
  Country: US (occurrence: US)
  Receive Date: 20221027
  Receipt Date: 20221027
  Transmission Date: 20230113
  Serious: No
  Sender: FDA-Public Use
  Company Number: US-BRISTOL-MYERS SQUIBB COMPANY-2022-126675

PATIENT
  Age: 65 Year
  Sex: Female
  Weight: 108 kg

DRUGS (1)
  1. LENALIDOMIDE [Suspect]
     Active Substance: LENALIDOMIDE
     Indication: Plasma cell myeloma
     Dosage: 1 DAILY FOR 14 DAYS, 7 DAYS OFF
     Route: 048
     Dates: start: 20220831

REACTIONS (2)
  - COVID-19 [Unknown]
  - Off label use [Unknown]
